FAERS Safety Report 24304354 (Version 1)
Quarter: 2024Q3

REPORT INFORMATION
  Report Type: Spontaneous
  Country: GB (occurrence: GB)
  Receive Date: 20240910
  Receipt Date: 20240910
  Transmission Date: 20241017
  Serious: Yes (Disabling, Other)
  Sender: TEVA
  Company Number: GB-MHRA-WEBRADR-202409012142599770-VQMDG

PATIENT
  Age: 56 Year
  Sex: Male
  Weight: 12 kg

DRUGS (1)
  1. AMLODIPINE [Suspect]
     Active Substance: AMLODIPINE BESYLATE
     Indication: Hypertension
     Route: 048
     Dates: start: 20240701, end: 20240901

REACTIONS (5)
  - Diarrhoea [Not Recovered/Not Resolved]
  - Vomiting projectile [Recovering/Resolving]
  - Pollakiuria [Not Recovered/Not Resolved]
  - Mood swings [Not Recovered/Not Resolved]
  - Erectile dysfunction [Not Recovered/Not Resolved]

NARRATIVE: CASE EVENT DATE: 20240701
